FAERS Safety Report 5581299-5 (Version None)
Quarter: 2008Q1

REPORT INFORMATION
  Report Type: 
  Country: None (occurrence: None)
  Receive Date: 20080104
  Receipt Date: 20071226
  Transmission Date: 20080703
  Serious: Yes (Death, Other)
  Sender: FDA-Public Use
  Company Number: JP-JNJFOC-20071201190

PATIENT
  Sex: Female
  Weight: 39 kg

DRUGS (14)
  1. DUROTEP [Suspect]
     Indication: CANCER PAIN
     Route: 062
  2. MEDICON [Concomitant]
     Indication: METASTASES TO CENTRAL NERVOUS SYSTEM
     Route: 048
  3. MEDICON [Concomitant]
     Indication: LUNG NEOPLASM MALIGNANT
     Route: 048
  4. MUCOSOLVAN [Concomitant]
     Indication: METASTASES TO CENTRAL NERVOUS SYSTEM
     Route: 048
  5. MUCOSOLVAN [Concomitant]
     Indication: LUNG NEOPLASM MALIGNANT
     Route: 048
  6. MEDROL [Concomitant]
     Indication: METASTASES TO CENTRAL NERVOUS SYSTEM
     Route: 048
  7. MEDROL [Concomitant]
     Indication: LUNG NEOPLASM MALIGNANT
     Route: 048
  8. OMEPRAZOLE [Concomitant]
     Indication: GASTRIC ULCER
     Route: 048
  9. HYPEN [Concomitant]
     Indication: CANCER PAIN
     Route: 048
  10. PRIMPERAN INJ [Concomitant]
     Indication: GASTRIC ULCER
     Route: 048
  11. MAGLAX [Concomitant]
     Indication: CANCER PAIN
     Route: 048
  12. PAXIL [Concomitant]
     Indication: DEPRESSION
     Route: 048
  13. OPSO [Concomitant]
     Indication: CANCER PAIN
     Route: 048
  14. GABAPENTIN [Concomitant]
     Indication: CANCER PAIN
     Route: 048

REACTIONS (2)
  - DISEASE PROGRESSION [None]
  - DRUG ERUPTION [None]
